FAERS Safety Report 7817303-0 (Version None)
Quarter: 2011Q4

REPORT INFORMATION
  Report Type: 
  Country: None (occurrence: None)
  Receive Date: 20111017
  Receipt Date: 20111011
  Transmission Date: 20120403
  Serious: Yes (Hospitalization)
  Sender: FDA-Public Use
  Company Number: JP-KINGPHARMUSA00001-K201101197

PATIENT
  Age: 68 Year
  Sex: Female

DRUGS (1)
  1. LEVOXYL [Suspect]
     Indication: HYPOTHYROIDISM
     Dosage: 25 MCG, QD
     Route: 048

REACTIONS (4)
  - THINKING ABNORMAL [None]
  - MEMORY IMPAIRMENT [None]
  - DEPRESSED LEVEL OF CONSCIOUSNESS [None]
  - STATUS EPILEPTICUS [None]
